FAERS Safety Report 7494937-7 (Version None)
Quarter: 2011Q2

REPORT INFORMATION
  Report Type: 
  Country: None (occurrence: None)
  Receive Date: 20110520
  Receipt Date: 20110506
  Transmission Date: 20111010
  Serious: Yes (Other)
  Sender: FDA-Public Use
  Company Number: US-ELI_LILLY_AND_COMPANY-US201105002240

PATIENT
  Sex: Female
  Weight: 58.957 kg

DRUGS (5)
  1. CYMBALTA [Suspect]
     Dosage: UNK, UNKNOWN
     Route: 065
     Dates: start: 20110409
  2. PREVACID [Concomitant]
     Dosage: UNK, UNKNOWN
     Route: 065
  3. WELLBUTRIN [Concomitant]
     Dosage: UNK, UNKNOWN
     Route: 065
  4. ALLEGRA [Concomitant]
     Dosage: UNK, UNKNOWN
     Route: 065
  5. SUMATRIPTAN SUCCINATE [Concomitant]
     Indication: MIGRAINE
     Dosage: UNK, UNKNOWN
     Route: 065
     Dates: start: 20110410, end: 20110410

REACTIONS (9)
  - PHARYNGEAL OEDEMA [None]
  - RASH [None]
  - INCREASED UPPER AIRWAY SECRETION [None]
  - DRUG INTERACTION [None]
  - NAUSEA [None]
  - BODY TEMPERATURE INCREASED [None]
  - ASTHENIA [None]
  - DYSPHAGIA [None]
  - DYSPNOEA [None]
